FAERS Safety Report 8294290-5 (Version None)
Quarter: 2012Q2

REPORT INFORMATION
  Report Type: 
  Country: None (occurrence: None)
  Receive Date: 20120418
  Receipt Date: 20120405
  Transmission Date: 20120825
  Serious: Yes (Other)
  Sender: FDA-Public Use
  Company Number: JP-VERTEX PHARMACEUTICALS INC.-AE-2012-005095

PATIENT
  Age: 47 Year
  Sex: Female

DRUGS (7)
  1. LENDORMIN [Concomitant]
     Route: 048
  2. RIBAVIRIN [Concomitant]
     Route: 048
     Dates: start: 20120215, end: 20120312
  3. RIBAVIRIN [Concomitant]
     Indication: HEPATITIS C
     Route: 048
     Dates: start: 20120111, end: 20120214
  4. RIBAVIRIN [Concomitant]
     Route: 048
     Dates: start: 20120403
  5. TELAVIC (TELAPREVIR) [Suspect]
     Indication: HEPATITIS C
     Route: 048
     Dates: start: 20120111, end: 20120404
  6. PEGINTERFERON [Concomitant]
     Indication: HEPATITIS C
     Route: 051
     Dates: start: 20120111
  7. RIBAVIRIN [Concomitant]
     Route: 048
     Dates: start: 20120313, end: 20120402

REACTIONS (2)
  - NEUTROPHIL COUNT DECREASED [None]
  - WHITE BLOOD CELL COUNT DECREASED [None]
